FAERS Safety Report 9639427 (Version 2)
Quarter: 2014Q1

REPORT INFORMATION
  Report Type: Spontaneous
  Country: US (occurrence: US)
  Receive Date: 20131022
  Receipt Date: 20140114
  Transmission Date: 20141002
  Serious: No
  Sender: FDA-Public Use
  Company Number: US-009507513-1310USA008877

PATIENT
  Age: 37 Year
  Sex: Female
  Weight: 85.17 kg

DRUGS (2)
  1. NEXPLANON [Suspect]
     Indication: CONTRACEPTION
     Dosage: 1 DF, UNK
     Route: 059
     Dates: start: 20131010, end: 20131010
  2. NEXPLANON [Suspect]
     Dosage: 1 DF, UNK
     Route: 059
     Dates: start: 20131010

REACTIONS (3)
  - Device difficult to use [Recovered/Resolved]
  - Device deployment issue [Unknown]
  - No adverse event [Unknown]
